FAERS Safety Report 23715985 (Version 1)
Quarter: 2024Q2

REPORT INFORMATION
  Report Type: Spontaneous
  Country: NO (occurrence: NO)
  Receive Date: 20240408
  Receipt Date: 20240408
  Transmission Date: 20240716
  Serious: Yes (Other)
  Sender: FDA-Public Use
  Company Number: None

PATIENT
  Age: 41 Year
  Sex: Male

DRUGS (5)
  1. ATORVASTATIN XIROMED [Concomitant]
     Indication: Hypercholesterolaemia
     Dosage: 40 MG, QD
     Dates: start: 2022, end: 202301
  2. METFORMIN [Concomitant]
     Active Substance: METFORMIN HYDROCHLORIDE
     Indication: Diabetes mellitus
     Dosage: 1000 MG, BID(1000 MG X 2 DAILY)
     Dates: start: 2015, end: 20230901
  3. OZEMPIC [Suspect]
     Active Substance: SEMAGLUTIDE
     Indication: Overweight
  4. OZEMPIC [Suspect]
     Active Substance: SEMAGLUTIDE
     Indication: Diabetes mellitus
     Dosage: UNK (3 WEEKS ON INITIAL DOSE + 2 WEEKS WITH ONE DOSAGE INCREASE)
     Route: 058
     Dates: end: 202307
  5. VENLAZID [Concomitant]
     Indication: Depression
     Dosage: 75 MG, QD
     Dates: start: 2015

REACTIONS (10)
  - Suicidal ideation [Unknown]
  - Condition aggravated [Unknown]
  - Aggression [Recovered/Resolved]
  - Memory impairment [Unknown]
  - Irritability [Unknown]
  - Mood altered [Unknown]
  - Eating disorder symptom [Unknown]
  - Anxiety [Unknown]
  - Constipation [Unknown]
  - Nausea [Unknown]
